FAERS Safety Report 22071786 (Version 2)
Quarter: 2023Q2

REPORT INFORMATION
  Report Type: Spontaneous
  Country: US (occurrence: US)
  Receive Date: 20230307
  Receipt Date: 20230418
  Transmission Date: 20230722
  Serious: No
  Sender: FDA-Public Use
  Company Number: US-INCYTE CORPORATION-2023IN002049

PATIENT

DRUGS (3)
  1. JAKAFI [Suspect]
     Active Substance: RUXOLITINIB
     Indication: Myelofibrosis
     Dosage: 5 MILLIGRAM, BID
     Route: 065
     Dates: start: 20221116
  2. JAKAFI [Suspect]
     Active Substance: RUXOLITINIB
     Dosage: 10 MILLIGRAM, BID
     Route: 065
     Dates: start: 20230125
  3. DARBEPOETIN ALFA [Suspect]
     Active Substance: DARBEPOETIN ALFA
     Dosage: UNK, 2X/WEEK
     Route: 065

REACTIONS (8)
  - Fatigue [Recovering/Resolving]
  - Haemoglobin abnormal [Unknown]
  - White blood cell count abnormal [Unknown]
  - Spleen palpable [Unknown]
  - Platelet disorder [Unknown]
  - Dyspnoea exertional [Unknown]
  - Anaemia [Unknown]
  - Dyspnoea [Unknown]
